FAERS Safety Report 5123659-2 (Version None)
Quarter: 2006Q3

REPORT INFORMATION
  Report Type: 
  Country: None (occurrence: None)
  Receive Date: 20060911
  Receipt Date: 20060613
  Transmission Date: 20061208
  Serious: No
  Sender: FDA-Public Use
  Company Number: S06-USA-02269-01

PATIENT
  Age: 82 Year
  Sex: Female

DRUGS (5)
  1. NAMENDA [Suspect]
     Indication: DEMENTIA
     Dosage: 5 MG QD PO
     Route: 048
     Dates: start: 20060601, end: 20060601
  2. NAMENDA [Suspect]
     Indication: ENCEPHALOPATHY
     Dosage: 5 MG QD PO
     Route: 048
     Dates: start: 20060601, end: 20060601
  3. NAMENDA [Suspect]
     Indication: DEMENTIA
     Dosage: 5 MG BID PO
     Route: 048
     Dates: start: 20060601
  4. NAMENDA [Suspect]
     Indication: ENCEPHALOPATHY
     Dosage: 5 MG BID PO
     Route: 048
     Dates: start: 20060601
  5. ASPIRIN [Concomitant]

REACTIONS (1)
  - SOMNOLENCE [None]
